FAERS Safety Report 4915916-7 (Version None)
Quarter: 2006Q1

REPORT INFORMATION
  Report Type: 
  Country: None (occurrence: None)
  Receive Date: 20060214
  Receipt Date: 20060130
  Transmission Date: 20060701
  Serious: Yes (Death)
  Sender: FDA-Public Use
  Company Number: US016705

PATIENT
  Age: 54 Year
  Sex: Female

DRUGS (4)
  1. ACTIQ [Suspect]
     Indication: MIGRAINE
     Dosage: 800 UG ONCE BUCCAL
     Route: 002
     Dates: start: 20050717, end: 20050717
  2. LOPRESSOR [Concomitant]
  3. ZOLOFT [Concomitant]
  4. HYDROCODONE [Concomitant]

REACTIONS (1)
  - ACCIDENTAL OVERDOSE [None]
